FAERS Safety Report 20386047 (Version 1)
Quarter: 2022Q1

REPORT INFORMATION
  Report Type: Spontaneous
  Country: US (occurrence: US)
  Receive Date: 20220127
  Receipt Date: 20220127
  Transmission Date: 20220423
  Serious: Yes (Other)
  Sender: FDA-Public Use
  Company Number: US-TEVA-2022-US-2001015

PATIENT
  Age: 55 Year
  Sex: Female

DRUGS (4)
  1. FLUOROURACIL [Suspect]
     Active Substance: FLUOROURACIL
     Indication: Colorectal cancer stage IV
     Dosage: FOLFOX-6 REGIME
     Route: 041
     Dates: start: 201207
  2. OXALIPLATIN [Suspect]
     Active Substance: OXALIPLATIN
     Indication: Colorectal cancer stage IV
     Dosage: 1020 MG/M2 DAILY; FOLFOX-6 REGIME
     Route: 065
     Dates: start: 201207
  3. LEUCOVORIN [Suspect]
     Active Substance: LEUCOVORIN
     Indication: Colorectal cancer stage IV
     Dosage: 2400 MG/M2 DAILY; FOLFOX-6 REGIME
     Route: 065
     Dates: start: 201207
  4. MODAFINIL [Suspect]
     Active Substance: MODAFINIL
     Indication: Colorectal cancer stage IV
     Dosage: 1X107CELLS/ML
     Route: 023
     Dates: start: 201210

REACTIONS (3)
  - Neutropenia [Unknown]
  - Injection site induration [Unknown]
  - Injection site erythema [Unknown]
